FAERS Safety Report 6064655-0 (Version None)
Quarter: 2009Q1

REPORT INFORMATION
  Report Type: 
  Country: None (occurrence: None)
  Receive Date: 20090204
  Receipt Date: 20080617
  Transmission Date: 20090719
  Serious: Yes (Hospitalization, Other)
  Sender: FDA-Public Use
  Company Number: A0714992A

PATIENT
  Age: 61 Year
  Sex: Male
  Weight: 93.2 kg

DRUGS (12)
  1. ARIXTRA [Suspect]
     Indication: DRUG USE FOR UNKNOWN INDICATION
     Route: 058
     Dates: start: 20080207, end: 20080215
  2. PREDNISONE [Concomitant]
  3. WARFARIN SODIUM [Concomitant]
  4. CELLCEPT [Concomitant]
  5. TACROLIMUS [Concomitant]
  6. LOPRESSOR [Concomitant]
  7. PRAVACHOL [Concomitant]
  8. ADVAIR DISKUS 100/50 [Concomitant]
  9. PRETANIX [Concomitant]
  10. BACTRIM [Concomitant]
  11. LASIX [Concomitant]
  12. VALCYTE [Concomitant]

REACTIONS (4)
  - HAEMOTHORAX [None]
  - PLEURAL EFFUSION [None]
  - PLEURAL HAEMORRHAGE [None]
  - TRANSPLANT REJECTION [None]
